FAERS Safety Report 9003588 (Version 2)
Quarter: 2013Q1

REPORT INFORMATION
  Report Type: Spontaneous
  Country: US (occurrence: US)
  Receive Date: 20130108
  Receipt Date: 20130211
  Transmission Date: 20140127
  Serious: No
  Sender: FDA-Public Use
  Company Number: US-009507513-1301USA001556

PATIENT
  Age: 39 Year
  Sex: Female
  Weight: 63.49 kg

DRUGS (2)
  1. CLARITIN REDITABS 12HR [Suspect]
     Indication: MYCOTIC ALLERGY
     Dosage: 10 MG, ONCE
     Route: 048
     Dates: start: 20121220
  2. CLARITIN REDITABS 12HR [Suspect]
     Indication: SEASONAL ALLERGY

REACTIONS (1)
  - Drug ineffective [Unknown]
